FAERS Safety Report 9304469 (Version 3)
Quarter: 2014Q1

REPORT INFORMATION
  Report Type: Spontaneous
  Country: US (occurrence: US)
  Receive Date: 20130523
  Receipt Date: 20140218
  Transmission Date: 20141002
  Serious: Yes (Other)
  Sender: FDA-Public Use
  Company Number: US-009507513-1305USA011615

PATIENT
  Sex: Male
  Weight: 102.95 kg

DRUGS (3)
  1. PROPECIA [Suspect]
     Dosage: UNK
     Route: 048
  2. FINASTERIDE [Suspect]
     Indication: ALOPECIA
     Dosage: 5 MG, UNK
     Route: 048
     Dates: start: 2008, end: 20110927
  3. PROZAC [Concomitant]
     Indication: DEPRESSION
     Dosage: 20 MG, QD
     Dates: start: 1989

REACTIONS (37)
  - Cardiac pacemaker insertion [Unknown]
  - Hypertension [Unknown]
  - Memory impairment [Unknown]
  - Atrioventricular block first degree [Unknown]
  - Gout [Unknown]
  - Fractured skull depressed [Unknown]
  - Syncope [Unknown]
  - Anorectal discomfort [Recovered/Resolved]
  - Faecal incontinence [Unknown]
  - Rectal haemorrhage [Unknown]
  - Sleep apnoea syndrome [Unknown]
  - Upper respiratory tract infection [Recovering/Resolving]
  - Prostatomegaly [Unknown]
  - Heart rate irregular [Unknown]
  - Bradycardia [Unknown]
  - Poor quality sleep [Unknown]
  - Glucose tolerance impaired [Unknown]
  - Skin lesion [Unknown]
  - Penile haemorrhage [Recovered/Resolved]
  - Platelet count decreased [Unknown]
  - Blood testosterone decreased [Unknown]
  - Scrotal haematocoele [Recovered/Resolved]
  - Anxiety [Unknown]
  - Sexual relationship change [Unknown]
  - Overdose [Unknown]
  - Gastrooesophageal reflux disease [Unknown]
  - Skin lesion [Unknown]
  - Acrochordon [Unknown]
  - Blood glucose increased [Unknown]
  - Oral bacterial infection [Unknown]
  - Nephrolithiasis [Unknown]
  - Anal fistula [Unknown]
  - Rectal fistula repair [Unknown]
  - Sexual dysfunction [Not Recovered/Not Resolved]
  - Depression [Unknown]
  - Libido decreased [Unknown]
  - Erectile dysfunction [Not Recovered/Not Resolved]
